FAERS Safety Report 24782845 (Version 1)
Quarter: 2024Q4

REPORT INFORMATION
  Report Type: Spontaneous
  Country: BR (occurrence: BR)
  Receive Date: 20241227
  Receipt Date: 20241227
  Transmission Date: 20250114
  Serious: Yes (Hospitalization)
  Sender: MYLAN
  Company Number: BR-MYLANLABS-2024M1114665

PATIENT
  Age: 30 Year
  Sex: Male

DRUGS (3)
  1. TRAMADOL [Suspect]
     Active Substance: TRAMADOL
     Indication: Product used for unknown indication
     Dosage: UNK
     Route: 065
  2. AMPHOTERICIN B DEOXYCHOLATE [Concomitant]
     Active Substance: AMPHOTERICIN B DEOXYCHOLATE
     Indication: Paracoccidioides infection
     Dosage: UNK
     Route: 065
  3. PAMIDRONIC ACID [Concomitant]
     Active Substance: PAMIDRONIC ACID
     Indication: Hypercalcaemia
     Dosage: 60 MILLIGRAM
     Route: 065

REACTIONS (1)
  - Drug eruption [Unknown]
